FAERS Safety Report 11418605 (Version 1)
Quarter: 2015Q3

REPORT INFORMATION
  Report Type: Report from Study
  Country: US (occurrence: US)
  Receive Date: 20150826
  Receipt Date: 20150826
  Transmission Date: 20151125
  Serious: Yes (Other)
  Sender: FDA-Public Use
  Company Number: US-BEH-2015053276

PATIENT
  Age: 11 Year
  Sex: Male

DRUGS (3)
  1. DEPAKOTE [Concomitant]
     Active Substance: DIVALPROEX SODIUM
  2. IVIG [Suspect]
     Active Substance: HUMAN IMMUNOGLOBULIN G
     Indication: TOXIC EPIDERMAL NECROLYSIS
     Route: 042
  3. ZONEGRAN [Concomitant]
     Active Substance: ZONISAMIDE

REACTIONS (1)
  - Acute kidney injury [Recovered/Resolved]
